FAERS Safety Report 8288166-7 (Version None)
Quarter: 2012Q2

REPORT INFORMATION
  Report Type: 
  Country: None (occurrence: None)
  Receive Date: 20120411
  Receipt Date: 20120404
  Transmission Date: 20120825
  Serious: Yes (Hospitalization)
  Sender: FDA-Public Use
  Company Number: SP05648

PATIENT
  Sex: Male
  Weight: 87.0906 kg

DRUGS (1)
  1. XIFAXAN [Suspect]
     Indication: HEPATIC CIRRHOSIS
     Dosage: ORAL
     Route: 048

REACTIONS (4)
  - OEDEMA PERIPHERAL [None]
  - PNEUMONIA [None]
  - FATIGUE [None]
  - PULMONARY OEDEMA [None]
